FAERS Safety Report 5492735-7 (Version None)
Quarter: 2007Q4

REPORT INFORMATION
  Report Type: 
  Country: None (occurrence: None)
  Receive Date: 20071023
  Receipt Date: 20071015
  Transmission Date: 20080405
  Serious: Yes (Hospitalization)
  Sender: FDA-Public Use
  Company Number: PHRM2007FR02413

PATIENT
  Age: 79 Year
  Sex: Female

DRUGS (15)
  1. VOLTAREN [Suspect]
     Indication: PAIN
     Dosage: 75 MG/DAY
     Route: 048
     Dates: end: 20070718
  2. ACTISKENAN [Suspect]
     Indication: SKIN ULCER
     Dosage: 10 MG/DAY
     Route: 048
     Dates: start: 20070717, end: 20070718
  3. ZOFENIL [Suspect]
     Indication: HYPERTENSION
     Dosage: 30 MG/DAY
     Route: 048
     Dates: start: 20061101, end: 20070718
  4. AMARYL [Suspect]
     Indication: TYPE 2 DIABETES MELLITUS
     Dosage: 1 MG/DAY
     Route: 048
     Dates: start: 20061101, end: 20070718
  5. LEVOTHYROX [Concomitant]
     Route: 048
  6. GINKOR [Concomitant]
     Route: 048
  7. PYOSTACINE [Concomitant]
     Route: 048
  8. ACETAMINOPHEN [Concomitant]
     Route: 048
  9. LASIX [Suspect]
     Route: 048
  10. FORLAX [Concomitant]
     Route: 048
  11. DIFFU K [Concomitant]
     Route: 048
  12. VITAMIN B-12 [Concomitant]
     Route: 048
  13. STEROGYL [Concomitant]
     Route: 048
  14. RIVOTRIL [Concomitant]
     Route: 048
  15. TOPALGIC [Concomitant]
     Route: 048

REACTIONS (9)
  - BLOOD CREATININE INCREASED [None]
  - BLOOD UREA INCREASED [None]
  - CONFUSIONAL STATE [None]
  - HYPOGLYCAEMIA [None]
  - HYPOTENSION [None]
  - NAUSEA [None]
  - RENAL FAILURE ACUTE [None]
  - SOMNOLENCE [None]
  - VOMITING [None]
